FAERS Safety Report 12770740 (Version 1)
Quarter: 2016Q3

REPORT INFORMATION
  Report Type: Report from Study
  Country: US (occurrence: US)
  Receive Date: 20160922
  Receipt Date: 20160922
  Transmission Date: 20161109
  Serious: Yes (Hospitalization, Other)
  Sender: FDA-Public Use
  Company Number: US-PFIZER INC-2016440063

PATIENT
  Age: 76 Year
  Sex: Female

DRUGS (11)
  1. MORPHINE SULFATE. [Suspect]
     Active Substance: MORPHINE SULFATE
     Indication: PAIN
     Route: 065
  2. TAGRISSO [Suspect]
     Active Substance: OSIMERTINIB
     Dosage: UNK
     Route: 048
  3. EXCEDRIN TENSION HEADACHE [Concomitant]
     Active Substance: ACETAMINOPHEN\CAFFEINE
  4. LEVOTHYROXINE. [Concomitant]
     Active Substance: LEVOTHYROXINE
  5. PRILOSEC [Suspect]
     Active Substance: OMEPRAZOLE MAGNESIUM
     Route: 048
  6. TAGRISSO [Suspect]
     Active Substance: OSIMERTINIB
     Indication: LUNG CARCINOMA CELL TYPE UNSPECIFIED STAGE 0
     Dosage: 80 MG, 1X/DAY
     Route: 048
     Dates: start: 20151223
  7. ATENOLOL. [Suspect]
     Active Substance: ATENOLOL
     Route: 048
  8. GABAPENTIN. [Concomitant]
     Active Substance: GABAPENTIN
     Indication: PAIN
  9. TRIAMTERENE. [Concomitant]
     Active Substance: TRIAMTERENE
  10. DILAUDID [Concomitant]
     Active Substance: HYDROMORPHONE HYDROCHLORIDE
  11. SAME ADENOSYS L METHIONINE [Concomitant]

REACTIONS (22)
  - Nausea [Unknown]
  - Dysgeusia [Unknown]
  - Cough [Recovered/Resolved]
  - Cancer pain [Unknown]
  - Vision blurred [Unknown]
  - Pleural effusion [Unknown]
  - Dyspnoea [Not Recovered/Not Resolved]
  - Abdominal discomfort [Unknown]
  - Dysphagia [Unknown]
  - Chest discomfort [Not Recovered/Not Resolved]
  - Diarrhoea [Unknown]
  - Ocular discomfort [Unknown]
  - Constipation [Unknown]
  - Fatigue [Unknown]
  - Muscular weakness [Unknown]
  - Pneumonia [Unknown]
  - Skin atrophy [Unknown]
  - Swelling [Unknown]
  - Skin burning sensation [Unknown]
  - Decreased appetite [Unknown]
  - Dysphonia [Unknown]
  - Dehydration [Unknown]

NARRATIVE: CASE EVENT DATE: 20151223
